FAERS Safety Report 9685031 (Version 2)
Quarter: 2013Q4

REPORT INFORMATION
  Report Type: Spontaneous
  Country: BE (occurrence: BE)
  Receive Date: 20131113
  Receipt Date: 20131122
  Transmission Date: 20140711
  Serious: Yes (Other)
  Sender: FDA-Public Use
  Company Number: BE-ROCHE-1302267

PATIENT
  Sex: Female

DRUGS (5)
  1. XOLAIR [Suspect]
     Indication: ASTHMA
     Route: 065
     Dates: start: 2010
  2. XOLAIR [Suspect]
     Route: 065
     Dates: start: 20131113
  3. MONTELUKAST [Concomitant]
  4. INUVAIR [Concomitant]
  5. NASONEX [Concomitant]

REACTIONS (1)
  - Asthma [Recovered/Resolved]
